FAERS Safety Report 9107069 (Version 1)
Quarter: 2013Q1

REPORT INFORMATION
  Report Type: Report from Study
  Country: JP (occurrence: JP)
  Receive Date: 20130221
  Receipt Date: 20130221
  Transmission Date: 20140127
  Serious: Yes (Death, Hospitalization, Other)
  Sender: FDA-Public Use
  Company Number: JP-009507513-2008SP001898

PATIENT
  Age: 39 Year
  Sex: Male
  Weight: 100 kg

DRUGS (44)
  1. TEMOZOLOMIDE [Suspect]
     Indication: OLIGOASTROCYTOMA
     Dosage: 75 MG/M2, QD
     Route: 048
     Dates: start: 20061130, end: 20070110
  2. TEMOZOLOMIDE [Suspect]
     Dosage: 150 MG/M2, QD
     Route: 048
     Dates: start: 20070217, end: 20070221
  3. TEMOZOLOMIDE [Suspect]
     Dosage: 200 MG/M2, QD
     Route: 048
     Dates: start: 20070317, end: 20070321
  4. TEMOZOLOMIDE [Suspect]
     Dosage: 200 MG/M2, QD
     Route: 048
     Dates: start: 20070414, end: 20070418
  5. TEMOZOLOMIDE [Suspect]
     Dosage: 200 MG/M2, QD
     Route: 048
     Dates: start: 20070512, end: 20070516
  6. TEMOZOLOMIDE [Suspect]
     Dosage: 200 MG/M2, QD
     Route: 048
     Dates: start: 20070609, end: 20070613
  7. TEMOZOLOMIDE [Suspect]
     Dosage: 200 MG/M2, QD
     Route: 048
     Dates: start: 20070721, end: 20070725
  8. TEMOZOLOMIDE [Suspect]
     Dosage: 200 MG/M2, QD
     Route: 048
     Dates: start: 20070818, end: 20070822
  9. TEMOZOLOMIDE [Suspect]
     Dosage: 200 MG/M2, QD
     Route: 048
     Dates: start: 20070915, end: 20070919
  10. TEMOZOLOMIDE [Suspect]
     Dosage: 200 MG/M2, QD
     Route: 048
     Dates: start: 20071013, end: 20071017
  11. TEMOZOLOMIDE [Suspect]
     Dosage: 200 MG/M2, QD
     Route: 048
     Dates: start: 20071110, end: 20071114
  12. TEMOZOLOMIDE [Suspect]
     Dosage: 200 MG/M2, QD
     Route: 048
     Dates: start: 20071208, end: 20071212
  13. TEMOZOLOMIDE [Suspect]
     Dosage: 200 MG/M2, QD
     Route: 048
     Dates: start: 20080105, end: 20080109
  14. TEMOZOLOMIDE [Suspect]
     Dosage: 200 MG/M2, QD
     Route: 048
     Dates: start: 20080202, end: 20080206
  15. TEMOZOLOMIDE [Suspect]
     Dosage: 200 MG/M2, QD
     Route: 048
     Dates: start: 20080301, end: 20080305
  16. TEMOZOLOMIDE [Suspect]
     Dosage: 200 MG/M2, QD
     Route: 048
     Dates: start: 20080328, end: 20080401
  17. TEMOZOLOMIDE [Suspect]
     Dosage: 200 MG/M2, QD
     Route: 048
     Dates: start: 20080425, end: 20080429
  18. TEMOZOLOMIDE [Suspect]
     Dosage: 200 MG/M2, QD
     Route: 048
     Dates: start: 20080613, end: 20080617
  19. TEMOZOLOMIDE [Suspect]
     Dosage: 200 MG/M2, QD
     Route: 048
     Dates: start: 20080711, end: 20080715
  20. TEMOZOLOMIDE [Suspect]
     Dosage: 200 MG/M2, QD
     Route: 048
     Dates: start: 20080808, end: 20080812
  21. TEMOZOLOMIDE [Suspect]
     Dosage: 200 MG/M2, QD
     Route: 048
     Dates: start: 20080906, end: 20080910
  22. TEMOZOLOMIDE [Suspect]
     Dosage: 200 MG/M2, QD
     Route: 048
     Dates: start: 20081004, end: 20081008
  23. TEMOZOLOMIDE [Suspect]
     Dosage: 200 MG/M2, QD
     Route: 048
     Dates: start: 20081101, end: 20081105
  24. TEMOZOLOMIDE [Suspect]
     Dosage: 200 MG/M2, QD
     Route: 048
     Dates: start: 20081129, end: 20081203
  25. TEMOZOLOMIDE [Suspect]
     Dosage: 200 MG/M2, QD
     Route: 048
     Dates: start: 20081227, end: 20081231
  26. TEMOZOLOMIDE [Suspect]
     Dosage: 150 MG/M2, QD
     Route: 048
     Dates: start: 20090909, end: 20090913
  27. TEMOZOLOMIDE [Suspect]
     Dosage: 200 MG/M2, QD
     Route: 048
     Dates: start: 20091007, end: 20091011
  28. TEMOZOLOMIDE [Suspect]
     Dosage: 200 MG/M2, QD
     Route: 048
     Dates: start: 20091205, end: 20091209
  29. TEMOZOLOMIDE [Suspect]
     Dosage: 200 MG/M2, QD
     Route: 048
     Dates: start: 20100120, end: 20100124
  30. TEMOZOLOMIDE [Suspect]
     Dosage: 200 MG/M2, QD
     Route: 048
     Dates: start: 20100303, end: 20100307
  31. TEMOZOLOMIDE [Suspect]
     Dosage: 200 MG/M2, QD
     Route: 048
     Dates: start: 20100407, end: 20100411
  32. TEMOZOLOMIDE [Suspect]
     Dosage: 200 MG/M2, QD
     Route: 048
     Dates: start: 20101022, end: 20101026
  33. ALEVIATIN [Suspect]
     Indication: PROPHYLAXIS
     Route: 048
  34. PROCARBAZINE HYDROCHLORIDE [Suspect]
     Dosage: UNK
     Route: 048
     Dates: start: 20090904, end: 20100411
  35. BLOPRESS [Concomitant]
     Route: 048
  36. AMLODIN (AMLODIPINE BESYLATE) [Concomitant]
     Route: 048
  37. MAGNESIUM OXIDE [Concomitant]
     Indication: PROPHYLAXIS
     Route: 048
     Dates: end: 20061219
  38. MAGNESIUM OXIDE [Concomitant]
     Indication: GENERAL SYMPTOM
  39. NAVOBAN [Concomitant]
     Indication: PROPHYLAXIS
     Dosage: UNK
     Route: 048
     Dates: start: 20061130, end: 20081231
  40. NAVOBAN [Concomitant]
     Dosage: UNK
     Route: 048
     Dates: start: 20090909, end: 20101026
  41. LOXOPROFEN [Concomitant]
     Indication: PROPHYLAXIS
     Dosage: UNK UNK, PRN
     Route: 048
     Dates: start: 20070604
  42. NAUZELIN [Concomitant]
     Indication: PROPHYLAXIS
     Dosage: WHEN PROCARBAZINE, TEMOFAR IS TAKEN (DOSAGE U)
     Route: 048
     Dates: start: 20090904, end: 20100124
  43. MAGMITT [Concomitant]
     Indication: PROPHYLAXIS
     Dosage: WHEN PROCARBAZINE, TEMODAR IS TAKEN (DOSAGE U)
     Route: 048
     Dates: start: 20090904, end: 20100723
  44. BAKTAR [Concomitant]
     Indication: ANTIFUNGAL PROPHYLAXIS
     Dosage: UNK
     Route: 048
     Dates: start: 20100115, end: 20110121

REACTIONS (7)
  - Lymphocyte count decreased [Recovered/Resolved]
  - Platelet count decreased [Recovered/Resolved]
  - Disease progression [Fatal]
  - Hydrocephalus [Recovering/Resolving]
  - Disease progression [Recovering/Resolving]
  - Purpura [Recovered/Resolved]
  - Nasopharyngitis [Recovered/Resolved]
